FAERS Safety Report 12569961 (Version 1)
Quarter: 2016Q3

REPORT INFORMATION
  Report Type: Spontaneous
  Country: US (occurrence: None)
  Receive Date: 20160718
  Receipt Date: 20160718
  Transmission Date: 20161109
  Serious: Yes (Other)
  Sender: FDA-Public Use
  Company Number: None

PATIENT
  Age: 69 Year
  Sex: Female
  Weight: 66.68 kg

DRUGS (1)
  1. PROMETHAZINE-CODEINE SYRYP, PHEN, 6.25 MG/10MG/5ML [Suspect]
     Active Substance: CODEINE PHOSPHATE\PROMETHAZINE
     Indication: COUGH
     Route: 048
     Dates: start: 20160715, end: 20160715

REACTIONS (1)
  - Cough [None]

NARRATIVE: CASE EVENT DATE: 20160715
